FAERS Safety Report 8444519-5 (Version None)
Quarter: 2012Q2

REPORT INFORMATION
  Report Type: 
  Country: None (occurrence: None)
  Receive Date: 20120618
  Receipt Date: 20120612
  Transmission Date: 20120825
  Serious: No
  Sender: FDA-Public Use
  Company Number: US-PFIZER INC-2012141510

PATIENT
  Sex: Male

DRUGS (3)
  1. DEPAKOTE [Concomitant]
     Indication: CONVULSION
     Dosage: 500 MG, 2X/DAY
  2. GENOTROPIN [Suspect]
     Dosage: 2 MG, UNK
  3. GENOTROPIN [Suspect]
     Indication: GROWTH RETARDATION
     Dosage: 2.8 MG, 6 DAYS A WEEK FOR 3 WEEKS
     Dates: start: 20120501

REACTIONS (1)
  - OEDEMA PERIPHERAL [None]
